FAERS Safety Report 5507637-7 (Version None)
Quarter: 2007Q4

REPORT INFORMATION
  Report Type: 
  Country: None (occurrence: None)
  Receive Date: 20071106
  Receipt Date: 20071106
  Transmission Date: 20080405
  Serious: Yes (Life-Threatening)
  Sender: FDA-Public Use
  Company Number: None

PATIENT
  Age: 81 Year
  Sex: Male
  Weight: 93.1 kg

DRUGS (1)
  1. AMIODARONE HCL [Suspect]
     Indication: VENTRICULAR TACHYCARDIA
     Dates: start: 20071028, end: 20071029

REACTIONS (3)
  - ATRIOVENTRICULAR BLOCK [None]
  - NO THERAPEUTIC RESPONSE [None]
  - TORSADE DE POINTES [None]
